FAERS Safety Report 24177693 (Version 2)
Quarter: 2024Q3

REPORT INFORMATION
  Report Type: Spontaneous
  Country: CN (occurrence: CN)
  Receive Date: 20240806
  Receipt Date: 20240814
  Transmission Date: 20241016
  Serious: Yes (Other)
  Sender: NOVARTIS
  Company Number: CN-002147023-NVSC2024CN158197

PATIENT
  Age: 81 Year
  Sex: Female
  Weight: 64 kg

DRUGS (3)
  1. SACUBITRIL\VALSARTAN [Suspect]
     Active Substance: SACUBITRIL\VALSARTAN
     Indication: Hypertension
     Dosage: 100 MG, BID
     Route: 048
     Dates: start: 20240728, end: 20240730
  2. SPIRONOLACTONE [Suspect]
     Active Substance: SPIRONOLACTONE
     Indication: Diuretic therapy
     Dosage: 20 MG, QD
     Route: 048
     Dates: start: 20240723, end: 20240728
  3. IRBESARTAN [Suspect]
     Active Substance: IRBESARTAN
     Indication: Hypertension
     Dosage: 0.15 G, QD
     Route: 048
     Dates: start: 20240723, end: 20240728

REACTIONS (1)
  - Renal impairment [Unknown]

NARRATIVE: CASE EVENT DATE: 20240726
